FAERS Safety Report 7344996-7 (Version None)
Quarter: 2011Q1

REPORT INFORMATION
  Report Type: 
  Country: None (occurrence: None)
  Receive Date: 20110302
  Receipt Date: 20110214
  Transmission Date: 20110831
  Serious: No
  Sender: FDA-Public Use
  Company Number: 2011-00063

PATIENT
  Age: 35 Year
  Sex: Female
  Weight: 50.8029 kg

DRUGS (2)
  1. ZICAM INTENSE SINUS RELIEF [Suspect]
     Dosage: BID X 3 DAYS
     Dates: start: 20110208, end: 20110210
  2. ZITHROMAX [Concomitant]

REACTIONS (2)
  - ANOSMIA [None]
  - SINUSITIS [None]
